FAERS Safety Report 5117945-X (Version None)
Quarter: 2006Q3

REPORT INFORMATION
  Report Type: 
  Country: None (occurrence: None)
  Receive Date: 20060926
  Receipt Date: 20060915
  Transmission Date: 20061208
  Serious: Yes (Hospitalization)
  Sender: FDA-Public Use
  Company Number: 2006AD000072

PATIENT
  Age: 9 Month
  Sex: Male
  Weight: 11.0224 kg

DRUGS (3)
  1. KEFLEX                                          (CEPHALEXIN POWDER) [Suspect]
     Indication: PHARYNGITIS
     Dosage: 3 ML; PO
     Route: 048
  2. PARACETAMOL [Concomitant]
  3. SCAFLAN [Concomitant]

REACTIONS (6)
  - CONVULSION [None]
  - DEPRESSION [None]
  - HYPERSENSITIVITY [None]
  - HYPOTHERMIA [None]
  - IRRITABILITY [None]
  - SYNCOPE [None]
